FAERS Safety Report 9095949 (Version 1)
Quarter: 2013Q1

REPORT INFORMATION
  Report Type: Spontaneous
  Country: US (occurrence: US)
  Receive Date: 20130219
  Receipt Date: 20130219
  Transmission Date: 20140127
  Serious: No
  Sender: FDA-Public Use
  Company Number: US-ASTRAZENECA-2013SE09155

PATIENT
  Age: 82 Year
  Sex: Female
  Weight: 80.3 kg

DRUGS (11)
  1. NEXIUM [Suspect]
     Indication: DYSPEPSIA
     Route: 048
  2. NEXIUM [Suspect]
     Indication: DYSPEPSIA
     Dosage: EVERY OTHER DAY
     Route: 048
  3. AMLODIPINE [Concomitant]
  4. PLAVIX [Concomitant]
  5. VYSTOLIC [Concomitant]
  6. KLOR CON [Concomitant]
  7. ALPRAZOLAM [Concomitant]
  8. FUROSEMIDE [Concomitant]
  9. CALCIUM [Concomitant]
  10. IRON [Concomitant]
  11. VITAMIN [Concomitant]

REACTIONS (9)
  - Sleep disorder due to a general medical condition [Not Recovered/Not Resolved]
  - Abdominal distension [Not Recovered/Not Resolved]
  - Weight decreased [Recovering/Resolving]
  - Influenza [Recovering/Resolving]
  - Cough [Recovering/Resolving]
  - Malaise [Not Recovered/Not Resolved]
  - Eructation [Not Recovered/Not Resolved]
  - Flatulence [Not Recovered/Not Resolved]
  - Intentional drug misuse [Not Recovered/Not Resolved]
